FAERS Safety Report 9337705 (Version 4)
Quarter: 2013Q3

REPORT INFORMATION
  Report Type: Report from Study
  Country: US (occurrence: US)
  Receive Date: 20130607
  Receipt Date: 20130822
  Transmission Date: 20140515
  Serious: Yes (Life-Threatening, Hospitalization, Other)
  Sender: FDA-Public Use
  Company Number: US-ABBOTT-13P-163-1099640-00

PATIENT
  Age: 55 Year
  Sex: Female
  Weight: 105.78 kg

DRUGS (7)
  1. HUMIRA [Suspect]
     Indication: PSORIASIS
     Route: 058
     Dates: start: 20100727, end: 20100727
  2. HUMIRA [Suspect]
     Route: 058
     Dates: start: 20100727, end: 20121130
  3. STELARA [Concomitant]
     Indication: DRUG INEFFECTIVE
     Dosage: 1 INJ IN 4 WKS, THEN 1 INJ IN 12 WKS
     Dates: start: 20121205
  4. ENBREL [Concomitant]
     Indication: PSORIASIS
  5. ENBREL [Concomitant]
     Indication: PSORIATIC ARTHROPATHY
  6. REMICAID [Concomitant]
     Indication: PSORIASIS
  7. REMICAID [Concomitant]
     Indication: PSORIATIC ARTHROPATHY

REACTIONS (4)
  - Immune thrombocytopenic purpura [Not Recovered/Not Resolved]
  - Evans syndrome [Not Recovered/Not Resolved]
  - Lymphoid tissue hyperplasia [Not Recovered/Not Resolved]
  - Autoimmune haemolytic anaemia [Not Recovered/Not Resolved]
